FAERS Safety Report 24335021 (Version 2)
Quarter: 2024Q3

REPORT INFORMATION
  Report Type: Spontaneous
  Country: GB (occurrence: GB)
  Receive Date: 20240918
  Receipt Date: 20240921
  Transmission Date: 20241016
  Serious: No
  Sender: ROCHE
  Company Number: GB-ROCHE-10000079550

PATIENT
  Age: 45 Year
  Sex: Female

DRUGS (1)
  1. OCREVUS [Suspect]
     Active Substance: OCRELIZUMAB
     Indication: Multiple sclerosis
     Dosage: LAST DOSE WAS ADMINISTERED ON 27/FEB/2024
     Route: 042
     Dates: start: 202106

REACTIONS (5)
  - Eye infection fungal [Not Recovered/Not Resolved]
  - COVID-19 [Recovering/Resolving]
  - White blood cell count decreased [Unknown]
  - Perineal infection [Unknown]
  - Fungal infection [Unknown]

NARRATIVE: CASE EVENT DATE: 20240801
